FAERS Safety Report 5726261-4 (Version None)
Quarter: 2008Q2

REPORT INFORMATION
  Report Type: 
  Country: None (occurrence: None)
  Receive Date: 20080430
  Receipt Date: 20080421
  Transmission Date: 20081010
  Serious: Yes (Hospitalization)
  Sender: FDA-Public Use
  Company Number: S08-USA-01528-01

PATIENT
  Age: 86 Year
  Sex: Female

DRUGS (1)
  1. NAMENDA [Suspect]
     Dates: start: 20071101, end: 20080301

REACTIONS (5)
  - ANAEMIA [None]
  - ASTHENIA [None]
  - PALLOR [None]
  - PLATELET COUNT DECREASED [None]
  - WHITE BLOOD CELL COUNT DECREASED [None]
